FAERS Safety Report 8481066-9 (Version None)
Quarter: 2012Q3

REPORT INFORMATION
  Report Type: 
  Country: None (occurrence: None)
  Receive Date: 20120702
  Receipt Date: 20120625
  Transmission Date: 20120928
  Serious: Yes (Hospitalization)
  Sender: FDA-Public Use
  Company Number: PHHY2012AT054574

PATIENT
  Age: 49 Year
  Sex: Female

DRUGS (2)
  1. CLOZAPINE [Suspect]
     Dosage: 52 DF, QD
     Route: 048
     Dates: start: 20120105
  2. CLOZAPINE [Suspect]
     Route: 048

REACTIONS (8)
  - HYPOTENSION [None]
  - CHOLINERGIC SYNDROME [None]
  - ACIDOSIS [None]
  - ELECTROCARDIOGRAM QT PROLONGED [None]
  - INTENTIONAL OVERDOSE [None]
  - VOMITING [None]
  - DELIRIUM [None]
  - NAUSEA [None]
